FAERS Safety Report 14704202 (Version 1)
Quarter: 2018Q2

REPORT INFORMATION
  Report Type: Spontaneous
  Country: US (occurrence: US)
  Receive Date: 20180402
  Receipt Date: 20180402
  Transmission Date: 20180711
  Serious: No
  Sender: FDA-Public Use
  Company Number: US-ALLERGAN-1715639US

PATIENT
  Age: 78 Year
  Sex: Female

DRUGS (3)
  1. OXYBUTIN [Concomitant]
     Active Substance: OXYBUTYNIN
     Indication: HYPERTONIC BLADDER
     Route: 048
  2. DELZICOL [Suspect]
     Active Substance: MESALAMINE
     Dosage: UNK, BID
     Route: 065
     Dates: start: 2011
  3. DELZICOL [Suspect]
     Active Substance: MESALAMINE
     Indication: COLITIS
     Dosage: ONCE OR TWICE DAILY
     Route: 065
     Dates: start: 2012

REACTIONS (1)
  - Hypoacusis [Recovered/Resolved]
